FAERS Safety Report 12280204 (Version 1)
Quarter: 2016Q2

REPORT INFORMATION
  Report Type: Other
  Country: IN (occurrence: IN)
  Receive Date: 20160419
  Receipt Date: 20160419
  Transmission Date: 20160815
  Serious: Yes (Life-Threatening)
  Sender: FDA-Public Use
  Company Number: IN-ORCHID HEALTHCARE-1050699

PATIENT
  Age: 27 Year
  Sex: Female

DRUGS (2)
  1. GENERAL ANAESTHESIA [Concomitant]
     Route: 065
  2. CEFUROXIME AXETIL. [Suspect]
     Active Substance: CEFUROXIME AXETIL
     Route: 042

REACTIONS (2)
  - Stress cardiomyopathy [Recovering/Resolving]
  - Anaphylactic reaction [Recovering/Resolving]
